FAERS Safety Report 7947318-3 (Version None)
Quarter: 2011Q4

REPORT INFORMATION
  Report Type: 
  Country: None (occurrence: None)
  Receive Date: 20111130
  Receipt Date: 20111118
  Transmission Date: 20120403
  Serious: Yes (Hospitalization)
  Sender: FDA-Public Use
  Company Number: FR-BIOGENIDEC-2011BI044194

PATIENT
  Age: 37 Year
  Sex: Female

DRUGS (3)
  1. TYSABRI [Suspect]
     Indication: MULTIPLE SCLEROSIS
     Route: 042
     Dates: start: 20080402
  2. AMANTADINE HCL [Concomitant]
     Route: 048
     Dates: start: 20090901
  3. BION [Concomitant]
     Indication: ASTHENIA
     Route: 048
     Dates: start: 20090901

REACTIONS (1)
  - CYST [None]
